FAERS Safety Report 8454085-6 (Version None)
Quarter: 2012Q2

REPORT INFORMATION
  Report Type: 
  Country: None (occurrence: None)
  Receive Date: 20120620
  Receipt Date: 20120613
  Transmission Date: 20120825
  Serious: Yes (Other)
  Sender: FDA-Public Use
  Company Number: US-PFIZER INC-2012143419

PATIENT
  Sex: Female

DRUGS (10)
  1. ALPRAZOLAM [Concomitant]
     Dosage: 0.5 MG, 3X/DAY
     Route: 048
     Dates: start: 20110725
  2. TRIAMTERENE AND HYDROCHLOROTHIAZIDE [Concomitant]
     Dosage: 37.5 MG-25 MG, 1X/DAY TAKE 1 CAPSULE EVERY DAY
     Route: 048
     Dates: start: 20110901
  3. FLUOXETINE [Concomitant]
     Dosage: 20 MG, 1X/DAY TAKE 1 CAPSULE EVERY DAY
     Route: 048
     Dates: start: 20110818
  4. LOVAZA [Concomitant]
     Dosage: 1 G, 1X/DAY 4 CAPSULE EVERY DAY
     Route: 048
     Dates: start: 20110127
  5. XANAX [Suspect]
     Dosage: 0.5 MG, 3X/DAY
  6. LIPITOR [Suspect]
     Dosage: 20 MG, 1X/DAY
     Dates: start: 20110127
  7. ATENOLOL [Concomitant]
     Dosage: 100 MG, 1X/DAY TAKE 1 TABLET EVERY DAY
     Route: 048
     Dates: start: 20110815
  8. BENAZEPRIL [Concomitant]
     Dosage: 10 MG, TAKE 1 TABLET EVERY DAY
     Route: 048
     Dates: start: 20120112
  9. ERGOCALCIFEROL [Concomitant]
     Dosage: 50,000 UNIT, EVERY WEEK
     Route: 048
     Dates: start: 20110701
  10. FENOFIBRATE [Concomitant]
     Dosage: 160 MG, 1X/DAY 1 TABLET EVERY DAY
     Route: 048
     Dates: start: 20110127

REACTIONS (1)
  - DIABETES MELLITUS [None]
